FAERS Safety Report 15575648 (Version 1)
Quarter: 2018Q4

REPORT INFORMATION
  Report Type: Spontaneous
  Country: US (occurrence: US)
  Receive Date: 20181101
  Receipt Date: 20181101
  Transmission Date: 20190205
  Serious: No
  Sender: FDA-Public Use
  Company Number: None

PATIENT
  Age: 66 Year
  Sex: Female
  Weight: 76.5 kg

DRUGS (1)
  1. TRAMADOL HCL 50 MG [Suspect]
     Active Substance: TRAMADOL HYDROCHLORIDE
     Indication: PAIN
     Dosage: ?          QUANTITY:2 TABLET(S);?
     Route: 048

REACTIONS (4)
  - Dysphonia [None]
  - Vomiting [None]
  - Oropharyngeal pain [None]
  - Dizziness [None]

NARRATIVE: CASE EVENT DATE: 20181031
